FAERS Safety Report 8600668-X (Version None)
Quarter: 2012Q3

REPORT INFORMATION
  Report Type: 
  Country: None (occurrence: None)
  Receive Date: 20120817
  Receipt Date: 20120808
  Transmission Date: 20120928
  Serious: Yes (Life-Threatening, Other)
  Sender: FDA-Public Use
  Company Number: CA-JNJFOC-20120804842

PATIENT
  Sex: Female
  Weight: 84 kg

DRUGS (9)
  1. BENADRYL [Concomitant]
     Indication: PREMEDICATION
     Route: 042
  2. TYLENOL [Concomitant]
     Indication: PREMEDICATION
     Route: 048
  3. IMURAN [Concomitant]
     Route: 048
  4. SOLU-CORTEF [Concomitant]
     Indication: PREMEDICATION
     Route: 042
  5. SYNTHROID [Concomitant]
     Route: 065
  6. REMICADE [Suspect]
     Route: 042
     Dates: start: 20110101
  7. REMICADE [Suspect]
     Indication: CROHN'S DISEASE
     Route: 042
     Dates: start: 20120713
  8. REMICADE [Suspect]
     Dosage: 3RD DOSE
     Route: 042
     Dates: start: 20120808
  9. ATENOLOL [Concomitant]
     Route: 048

REACTIONS (10)
  - PALLOR [None]
  - PALPITATIONS [None]
  - VOMITING [None]
  - DYSPNOEA [None]
  - HEART RATE INCREASED [None]
  - PARAESTHESIA ORAL [None]
  - BLOOD PRESSURE INCREASED [None]
  - ADVERSE DRUG REACTION [None]
  - FLUSHING [None]
  - INFUSION RELATED REACTION [None]
